FAERS Safety Report 9165396 (Version 1)
Quarter: 2013Q1

REPORT INFORMATION
  Report Type: Spontaneous
  Country: US (occurrence: None)
  Receive Date: 20130314
  Receipt Date: 20130314
  Transmission Date: 20140127
  Serious: Yes (Hospitalization)
  Sender: FDA-Public Use
  Company Number: None

PATIENT
  Age: 66 Year
  Sex: Male
  Weight: 103.6 kg

DRUGS (5)
  1. CARFILZOMIB [Suspect]
     Indication: WALDENSTROM^S MACROGLOBULINAEMIA
     Route: 042
     Dates: start: 20121210, end: 20130219
  2. DEXAMETHASONE\RITUXIMAB [Suspect]
     Indication: WALDENSTROM^S MACROGLOBULINAEMIA
     Route: 042
     Dates: start: 20121210, end: 20130219
  3. ACYCLOVIR [Concomitant]
  4. LASIX [Concomitant]
  5. PEPCID [Concomitant]

REACTIONS (2)
  - Atrial flutter [None]
  - Ejection fraction decreased [None]
